FAERS Safety Report 7449768-0 (Version None)
Quarter: 2011Q1

REPORT INFORMATION
  Report Type: 
  Country: None (occurrence: None)
  Receive Date: 20110302
  Receipt Date: 20101130
  Transmission Date: 20110831
  Serious: No
  Sender: FDA-Public Use
  Company Number: 022939

PATIENT
  Sex: Female

DRUGS (1)
  1. CIMZIA [Suspect]
     Indication: CROHN'S DISEASE
     Dosage: SUBCUTANEOUS
     Route: 058
     Dates: start: 20100614

REACTIONS (7)
  - BRONCHITIS [None]
  - NASOPHARYNGITIS [None]
  - SINUS DISORDER [None]
  - BACK PAIN [None]
  - CHOKING [None]
  - NECK PAIN [None]
  - COUGH [None]
